FAERS Safety Report 8818711 (Version 1)
Quarter: 2012Q4

REPORT INFORMATION
  Report Type: 
  Country: IN (occurrence: IN)
  Receive Date: 20121001
  Receipt Date: 20121001
  Transmission Date: 20130627
  Serious: Yes (Other)
  Sender: FDA-Public Use
  Company Number: IN-ROCHE-1136006

PATIENT
  Age: 26 Year
  Sex: Female

DRUGS (4)
  1. RITUXIMAB [Suspect]
     Indication: SYSTEMIC LUPUS ERYTHEMATOSUS
     Dosage: three weekly dose (1.5g-total)
     Route: 065
  2. MYCOPHENOLATE MOFETIL [Suspect]
     Indication: LUPUS NEPHRITIS
  3. PREDNISOLONE [Concomitant]
     Route: 048
  4. CYCLOPHOSPHAMIDE [Concomitant]
     Route: 042

REACTIONS (2)
  - Pulmonary fibrosis [Unknown]
  - Gastrointestinal disorder [Unknown]
